FAERS Safety Report 8398649-7 (Version None)
Quarter: 2012Q2

REPORT INFORMATION
  Report Type: 
  Country: None (occurrence: None)
  Receive Date: 20120524
  Receipt Date: 20120509
  Transmission Date: 20120825
  Serious: Yes (Other)
  Sender: FDA-Public Use
  Company Number: DSJ-2012-08521

PATIENT
  Age: 7 Decade
  Sex: Male

DRUGS (5)
  1. ALLOPURINOL [Concomitant]
  2. PANTOPRAZOLE (PANTOPRAZOLE) (PANTOPRAZOLE) [Concomitant]
  3. BENICAR HCT [Suspect]
     Indication: HYPERTENSION
     Dosage: 20/12.5MG (1 IN 1 D), PER ORAL
     Route: 048
     Dates: start: 20080101, end: 20111101
  4. BENICAR HCT [Suspect]
     Indication: HYPERTENSION
     Dosage: 20/12.5MG (1 IN 1 D), PER ORAL
     Route: 048
     Dates: start: 20120301
  5. ROSUVASTATIN [Suspect]
     Indication: HYPERTRIGLYCERIDAEMIA
     Dosage: 10 MG, PER ORAL
     Route: 048
     Dates: start: 20110101

REACTIONS (8)
  - HYPERTRIGLYCERIDAEMIA [None]
  - HAEMORRHAGE [None]
  - ANGIOEDEMA [None]
  - PYREXIA [None]
  - POST PROCEDURAL INFECTION [None]
  - OSTEOARTHRITIS [None]
  - PANCREATIC NEOPLASM [None]
  - HYPERSENSITIVITY [None]
